FAERS Safety Report 6976274-X (Version None)
Quarter: 2010Q3

REPORT INFORMATION
  Report Type: 
  Country: None (occurrence: None)
  Receive Date: 20100910
  Receipt Date: 20090417
  Transmission Date: 20110219
  Serious: No
  Sender: FDA-Public Use
  Company Number: US-WYE-H09011809

PATIENT
  Sex: Female

DRUGS (6)
  1. PRISTIQ [Suspect]
     Indication: DEPRESSION
     Route: 048
     Dates: start: 20090415
  2. ALEVE (CAPLET) [Concomitant]
  3. PROTONIX [Concomitant]
  4. ALPRAZOLAM [Concomitant]
  5. PROZAC [Concomitant]
  6. EVISTA [Concomitant]

REACTIONS (1)
  - MEDICATION RESIDUE [None]
